FAERS Safety Report 9690218 (Version 1)
Quarter: 2013Q4

REPORT INFORMATION
  Report Type: Spontaneous
  Country: CO (occurrence: CO)
  Receive Date: 20131115
  Receipt Date: 20131115
  Transmission Date: 20140711
  Serious: Yes (Hospitalization)
  Sender: FDA-Public Use
  Company Number: CO-UCBSA-103073

PATIENT
  Age: 78 Year
  Sex: Female

DRUGS (4)
  1. CIMZIA [Suspect]
     Indication: RHEUMATOID ARTHRITIS
     Route: 058
     Dates: start: 20120910, end: 20130904
  2. CHLOROQUINE [Concomitant]
  3. METHOTREXATE [Concomitant]
  4. STRONTIUM RENELATE [Concomitant]

REACTIONS (1)
  - Pneumonia bacterial [Unknown]
